FAERS Safety Report 12633116 (Version 2)
Quarter: 2016Q3

REPORT INFORMATION
  Report Type: Spontaneous
  Country: US (occurrence: US)
  Receive Date: 20160808
  Receipt Date: 20160808
  Transmission Date: 20161109
  Serious: No
  Sender: FDA-Public Use
  Company Number: US-BEH-2016058469

PATIENT
  Sex: Female
  Weight: 49 kg

DRUGS (27)
  1. AZITHROMYCIN ANHYDROUS. [Concomitant]
     Active Substance: AZITHROMYCIN ANHYDROUS
  2. ERYTHROMYCIN. [Concomitant]
     Active Substance: ERYTHROMYCIN
     Dosage: FILMTABLET
  3. PREDNISONE. [Concomitant]
     Active Substance: PREDNISONE
  4. HIZENTRA [Suspect]
     Active Substance: HUMAN IMMUNOGLOBULIN G
     Dosage: AS DIRECTED.
     Route: 058
     Dates: start: 20130129
  5. LIDOCAINE. [Concomitant]
     Active Substance: LIDOCAINE
  6. WAL-ZYR D TABLET [Concomitant]
  7. CHILD ZYRTEC [Concomitant]
     Dosage: 1 MG/ML SOLUTION
  8. POLYETHYLENE GLYCOL [Concomitant]
     Active Substance: POLYETHYLENE GLYCOLS
     Dosage: 3350 POWD
  9. EPI-PEN AUTOINJECTOR [Concomitant]
  10. KENALOG-10 [Concomitant]
     Active Substance: TRIAMCINOLONE ACETONIDE
     Dosage: 10 MG/ML VIAL
  11. CLOBETASOL [Concomitant]
     Active Substance: CLOBETASOL
  12. CHILD MULTIVITAMINS TAB CHEW [Concomitant]
  13. QVAR [Concomitant]
     Active Substance: BECLOMETHASONE DIPROPIONATE
     Dosage: INHALER
  14. HIZENTRA [Suspect]
     Active Substance: HUMAN IMMUNOGLOBULIN G
     Route: 058
  15. DIPHENHYDRAMINE. [Concomitant]
     Active Substance: DIPHENHYDRAMINE
  16. STRATTERA [Concomitant]
     Active Substance: ATOMOXETINE HYDROCHLORIDE
  17. HIZENTRA [Suspect]
     Active Substance: HUMAN IMMUNOGLOBULIN G
     Indication: HYPOGAMMAGLOBULINAEMIA
     Route: 058
  18. CLINDAMYCIN HCL [Concomitant]
     Active Substance: CLINDAMYCIN HYDROCHLORIDE
  19. ZOFRAN [Concomitant]
     Active Substance: ONDANSETRON HYDROCHLORIDE
  20. XOPENEX [Concomitant]
     Active Substance: LEVALBUTEROL HYDROCHLORIDE
     Dosage: 0.63 MG/3ML SOLUTION
  21. ROCEPHIN [Concomitant]
     Active Substance: CEFTRIAXONE SODIUM
     Dosage: VIAL
  22. FLUCONAZOLE. [Concomitant]
     Active Substance: FLUCONAZOLE
  23. GUAIFENESIN. [Concomitant]
     Active Substance: GUAIFENESIN
  24. ICAR-C TABLET [Concomitant]
  25. ACETAMINOPHEN. [Concomitant]
     Active Substance: ACETAMINOPHEN
  26. BACTROBAN [Concomitant]
     Active Substance: MUPIROCIN\MUPIROCIN CALCIUM
  27. HYOSYNE [Concomitant]
     Active Substance: HYOSCYAMINE SULFATE
     Dosage: 0.125 MG/ML DROP

REACTIONS (1)
  - Nasopharyngitis [Unknown]
